FAERS Safety Report 6794997-2 (Version None)
Quarter: 2010Q2

REPORT INFORMATION
  Report Type: 
  Country: None (occurrence: None)
  Receive Date: 20100625
  Receipt Date: 20100610
  Transmission Date: 20101027
  Serious: Yes (Other)
  Sender: FDA-Public Use
  Company Number: PHHY2010JP30341

PATIENT
  Age: 3 Year
  Sex: Male

DRUGS (1)
  1. ZADITEN [Suspect]

REACTIONS (2)
  - CYSTITIS [None]
  - HAEMATURIA [None]
